FAERS Safety Report 7423013-4 (Version None)
Quarter: 2011Q2

REPORT INFORMATION
  Report Type: 
  Country: None (occurrence: None)
  Receive Date: 20110411
  Receipt Date: 20110323
  Transmission Date: 20111010
  Serious: Yes (Death, Other)
  Sender: FDA-Public Use
  Company Number: 2011-00378

PATIENT
  Age: 81 Year
  Sex: Male

DRUGS (4)
  1. FLUCOXACILLIN [Concomitant]
  2. FUSIDATE SODIUM [Suspect]
     Indication: OSTEOMYELITIS
  3. FUSIDATE SODIUM [Suspect]
     Indication: DIABETIC FOOT
  4. SIMVASTATIN (UNKNOWN) [Suspect]
     Indication: PRODUCT USED FOR UNKNOWN INDICATION
     Dosage: 40 MG

REACTIONS (4)
  - RENAL FAILURE ACUTE [None]
  - RHABDOMYOLYSIS [None]
  - DRUG INTERACTION [None]
  - TOXICITY TO VARIOUS AGENTS [None]
